FAERS Safety Report 10610281 (Version 1)
Quarter: 2014Q4

REPORT INFORMATION
  Report Type: Spontaneous
  Country: US (occurrence: US)
  Receive Date: 20141126
  Receipt Date: 20141126
  Transmission Date: 20150529
  Serious: Yes (Other)
  Sender: FDA-Public Use
  Company Number: US-RB-070440-14

PATIENT
  Age: 13 Year
  Sex: Female

DRUGS (1)
  1. MUCINEX [Suspect]
     Active Substance: GUAIFENESIN
     Indication: PRODUCT USED FOR UNKNOWN INDICATION
     Dosage: TOOK A HIGH DOSE
     Route: 065

REACTIONS (5)
  - Confusional state [Unknown]
  - Social avoidant behaviour [Unknown]
  - Delusion [Unknown]
  - Depression [Unknown]
  - Overdose [Unknown]
